FAERS Safety Report 16301616 (Version 1)
Quarter: 2019Q2

REPORT INFORMATION
  Report Type: Spontaneous
  Country: US (occurrence: US)
  Receive Date: 20190511
  Receipt Date: 20190511
  Transmission Date: 20190711
  Serious: No
  Sender: FDA-Public Use
  Company Number: US-JNJFOC-20190442192

PATIENT
  Age: 53 Year
  Sex: Female

DRUGS (4)
  1. BETAMETHASONE. [Concomitant]
     Active Substance: BETAMETHASONE
     Route: 061
  2. CHOLESTYRAMINE. [Concomitant]
     Active Substance: CHOLESTYRAMINE
     Route: 048
  3. METHOTREXATE. [Concomitant]
     Active Substance: METHOTREXATE
     Route: 050
  4. STELARA [Suspect]
     Active Substance: USTEKINUMAB
     Indication: PRODUCT USED FOR UNKNOWN INDICATION
     Route: 030

REACTIONS (4)
  - Off label use [Unknown]
  - Incorrect route of product administration [Unknown]
  - Product dose omission [Unknown]
  - Product storage error [Unknown]

NARRATIVE: CASE EVENT DATE: 20190425
